FAERS Safety Report 9346898 (Version 1)
Quarter: 2013Q2

REPORT INFORMATION
  Report Type: Spontaneous
  Country: FR (occurrence: FR)
  Receive Date: 20130613
  Receipt Date: 20130613
  Transmission Date: 20140414
  Serious: Yes (Other)
  Sender: FDA-Public Use
  Company Number: FR-TEVA-411768ISR

PATIENT
  Age: 84 Year
  Sex: Male

DRUGS (3)
  1. FUROSEMIDE TEVA 40 MG [Suspect]
     Dates: start: 201305, end: 2013
  2. SERESTA [Concomitant]
     Dates: start: 201305
  3. MORPHINIC DERIVATIVES [Concomitant]
     Dates: start: 201305

REACTIONS (3)
  - Lethargy [Not Recovered/Not Resolved]
  - Aphagia [Unknown]
  - Dysphagia [Unknown]
